FAERS Safety Report 4353551-2 (Version None)
Quarter: 2004Q2

REPORT INFORMATION
  Report Type: 
  Country: None (occurrence: None)
  Receive Date: 20040430
  Receipt Date: 20040420
  Transmission Date: 20050107
  Serious: Yes (Hospitalization)
  Sender: FDA-Public Use
  Company Number: K200400597

PATIENT
  Age: 50 Year
  Sex: Male

DRUGS (6)
  1. ALTACE [Suspect]
     Dosage: 1.25 MG, QD, ORAL
     Route: 048
  2. ALDACTONE [Suspect]
     Dosage: 25 MG, QD, ORAL
     Route: 048
     Dates: end: 20040120
  3. PREVISCAN (FLUINDIONE) [Concomitant]
  4. CORDARONE [Concomitant]
  5. OXAZEPAM [Concomitant]
  6. ASPEGIC 1000 [Concomitant]

REACTIONS (5)
  - DRUG INTERACTION [None]
  - HYPERKALAEMIA [None]
  - HYPOKALAEMIA [None]
  - HYPONATRAEMIA [None]
  - MALAISE [None]
